FAERS Safety Report 11340787 (Version 1)
Quarter: 2015Q3

REPORT INFORMATION
  Report Type: Spontaneous
  Country: US (occurrence: None)
  Receive Date: 20150803
  Receipt Date: 20150803
  Transmission Date: 20151125
  Serious: Yes (Disabling)
  Sender: FDA-Public Use
  Company Number: None

PATIENT
  Age: 50 Year
  Sex: Female
  Weight: 55.79 kg

DRUGS (12)
  1. TENS [Concomitant]
  2. DIGESTIVE ENZIMES [Concomitant]
  3. CIPRO [Suspect]
     Active Substance: CIPROFLOXACIN HYDROCHLORIDE
  4. CHLORAZAPATE [Concomitant]
  5. GINSENG [Concomitant]
     Active Substance: ASIAN GINSENG
  6. D3 [Concomitant]
     Active Substance: 25-HYDROXYCHOLECALCIFEROL, 5-TRANS-
  7. ZINC [Concomitant]
     Active Substance: ZINC\ZINC CHLORIDE
  8. PROBIOTICS [Concomitant]
     Active Substance: PROBIOTICS NOS
  9. TRAMADOL. [Concomitant]
     Active Substance: TRAMADOL
  10. MAGNESIUM [Concomitant]
     Active Substance: MAGNESIUM
  11. GABAPENTIN. [Concomitant]
     Active Substance: GABAPENTIN
  12. PEPCID AC [Concomitant]
     Active Substance: FAMOTIDINE

REACTIONS (15)
  - Adverse reaction [None]
  - Dyspnoea [None]
  - Muscle atrophy [None]
  - Tendon disorder [None]
  - Activities of daily living impaired [None]
  - Lung infection [None]
  - Pain [None]
  - Dyspepsia [None]
  - Impaired work ability [None]
  - Neuropathy peripheral [None]
  - Insomnia [None]
  - Hypoaesthesia [None]
  - Shock [None]
  - Palpitations [None]
  - Burning sensation [None]
